FAERS Safety Report 14347147 (Version 1)
Quarter: 2018Q1

REPORT INFORMATION
  Report Type: Spontaneous
  Country: JP (occurrence: JP)
  Receive Date: 20180103
  Receipt Date: 20180103
  Transmission Date: 20180509
  Serious: Yes (Other)
  Sender: FDA-Public Use
  Company Number: JP-PFIZER INC-2017552061

PATIENT
  Age: 69 Year
  Sex: Female

DRUGS (1)
  1. ATARAX-P 25MG [Suspect]
     Active Substance: HYDROXYZINE HYDROCHLORIDE
     Dosage: UNK
     Route: 048
     Dates: start: 201610, end: 201611

REACTIONS (1)
  - Drug-induced liver injury [Unknown]
